FAERS Safety Report 8350394-X (Version None)
Quarter: 2012Q2

REPORT INFORMATION
  Report Type: 
  Country: None (occurrence: None)
  Receive Date: 20120510
  Receipt Date: 20120503
  Transmission Date: 20120825
  Serious: Yes (Hospitalization)
  Sender: FDA-Public Use
  Company Number: US-BAYER-2012-044334

PATIENT
  Age: 31 Year
  Sex: Female

DRUGS (7)
  1. YAZ [Suspect]
     Dosage: UNK
     Dates: start: 20080226
  2. ASTELIN [Concomitant]
     Dosage: 137 MCG
     Route: 061
     Dates: start: 20080404
  3. YAZ [Suspect]
     Dosage: UNK
     Dates: start: 20071208
  4. ZYMAR [Concomitant]
     Dosage: 0.3 %, UNK
     Route: 061
     Dates: start: 20080417
  5. ALREX [Concomitant]
     Dosage: 0.2 %, UNK
     Dates: start: 20080505
  6. CLARITHROMYCIN [Concomitant]
     Dosage: 500 MG, UNK
     Route: 048
     Dates: start: 20080229
  7. AVELOX [Concomitant]
     Dosage: 400 MG, UNK
     Route: 048
     Dates: start: 20080331

REACTIONS (1)
  - PULMONARY EMBOLISM [None]
